FAERS Safety Report 4909204-2 (Version None)
Quarter: 2006Q1

REPORT INFORMATION
  Report Type: 
  Country: None (occurrence: None)
  Receive Date: 20060209
  Receipt Date: 20060209
  Transmission Date: 20060701
  Serious: Yes (Other)
  Sender: FDA-Public Use
  Company Number: None

PATIENT
  Age: 49 Year
  Sex: Male
  Weight: 50.3493 kg

DRUGS (1)
  1. NEURONTIN [Suspect]
     Indication: AUTONOMIC NEUROPATHY
     Dosage: NEURONTIN - GEBAPENTIN - 1 PO
     Route: 048
     Dates: start: 20050509, end: 20060207

REACTIONS (8)
  - BURNING SENSATION [None]
  - DEPRESSION [None]
  - DISTURBANCE IN ATTENTION [None]
  - DIZZINESS [None]
  - DRUG INTOLERANCE [None]
  - HEADACHE [None]
  - NIGHTMARE [None]
  - PAIN [None]
